FAERS Safety Report 6417231-1 (Version None)
Quarter: 2009Q4

REPORT INFORMATION
  Report Type: 
  Country: None (occurrence: None)
  Receive Date: 20091028
  Receipt Date: 20091020
  Transmission Date: 20100525
  Serious: Yes (Hospitalization)
  Sender: FDA-Public Use
  Company Number: US-JNJFOC-20091007075

PATIENT
  Age: 90 Year
  Sex: Female

DRUGS (12)
  1. LEVAQUIN [Suspect]
     Indication: DIVERTICULITIS
     Route: 048
     Dates: start: 20090101, end: 20090101
  2. FLAGYL [Suspect]
     Indication: DRUG USE FOR UNKNOWN INDICATION
     Route: 065
  3. BACTRIM [Suspect]
     Indication: DRUG USE FOR UNKNOWN INDICATION
     Route: 065
  4. SYNTHROID [Concomitant]
     Route: 065
  5. FOSAMAX [Concomitant]
     Route: 065
  6. ALLOPURINOL [Concomitant]
     Route: 065
  7. ATENOLOL [Concomitant]
     Route: 065
  8. LISINOPRIL [Concomitant]
     Route: 065
  9. PREMARIN [Concomitant]
     Route: 065
  10. PROTONIX [Concomitant]
     Route: 065
  11. NIACIN [Concomitant]
     Route: 065
  12. IRON PILL [Concomitant]
     Route: 065

REACTIONS (2)
  - ABSCESS [None]
  - TENDON PAIN [None]
